FAERS Safety Report 6573594-8 (Version None)
Quarter: 2010Q1

REPORT INFORMATION
  Report Type: 
  Country: None (occurrence: None)
  Receive Date: 20100208
  Receipt Date: 20100129
  Transmission Date: 20100710
  Serious: Yes (Hospitalization)
  Sender: FDA-Public Use
  Company Number: JP-ASTRAZENECA-2010SE04997

PATIENT
  Age: 70 Year
  Sex: Female
  Weight: 45 kg

DRUGS (15)
  1. BLOPRESS [Suspect]
     Indication: HYPERTENSION
     Route: 048
     Dates: start: 20070101
  2. OMEPRAZOLE [Interacting]
     Indication: PROPHYLAXIS AGAINST GASTROINTESTINAL ULCER
     Route: 048
     Dates: start: 20050101
  3. FENTANYL [Interacting]
     Indication: PAIN
     Dosage: THREE TIMES A WEEK
     Route: 062
     Dates: start: 20090601, end: 20090727
  4. RESTEX [Interacting]
     Indication: RESTLESS LEGS SYNDROME
     Dosage: LEVODOPA 100 MG PLUS BENSERAZIDE 25 MG, DAILY
     Route: 048
     Dates: start: 20060101
  5. CARVEDILOL 1 A PHARMA [Interacting]
     Indication: HYPERTENSION
     Route: 048
     Dates: start: 20060101
  6. NOVONORM [Interacting]
     Indication: TYPE 2 DIABETES MELLITUS
     Route: 048
     Dates: start: 20070101
  7. SIMVASTATIN [Interacting]
     Indication: DYSLIPIDAEMIA
     Route: 048
     Dates: start: 20050101
  8. ACTONEL [Interacting]
     Indication: OSTEOPOROSIS
     Route: 048
     Dates: start: 20080101
  9. MIMPARA [Interacting]
     Indication: HYPERPARATHYROIDISM SECONDARY
     Route: 048
     Dates: start: 20060101
  10. DREISAVIT [Concomitant]
     Indication: VITAMIN SUPPLEMENTATION
     Dosage: VITAMINS, EVERY DAY
     Route: 048
     Dates: start: 20050101, end: 20090726
  11. FOSRENOL [Concomitant]
     Indication: RENAL FAILURE
     Route: 048
     Dates: start: 20070101
  12. DIGIMED [Concomitant]
     Indication: CORONARY ARTERY DISEASE
     Route: 048
     Dates: start: 20070601
  13. MCP 1 A PHARMA [Concomitant]
     Indication: NAUSEA
     Route: 048
     Dates: start: 20050101, end: 20090731
  14. ASS AL [Concomitant]
     Indication: CORONARY ARTERY DISEASE
     Route: 048
     Dates: start: 20050101
  15. METAMIZOLE 1 A PHARMA [Concomitant]
     Indication: PAIN
     Route: 048
     Dates: start: 20090601

REACTIONS (3)
  - POTENTIATING DRUG INTERACTION [None]
  - SOMNOLENCE [None]
  - TRANSAMINASES INCREASED [None]
